FAERS Safety Report 5263966-6 (Version None)
Quarter: 2007Q1

REPORT INFORMATION
  Report Type: 
  Country: None (occurrence: None)
  Receive Date: 20070313
  Receipt Date: 20070302
  Transmission Date: 20070707
  Serious: Yes (Death)
  Sender: FDA-Public Use
  Company Number: US-ROCHE-485155

PATIENT
  Sex: Female

DRUGS (4)
  1. VALGANCICLOVIR HCL [Suspect]
     Dosage: RECEIVED 2 DOSES
     Route: 048
     Dates: start: 20060915
  2. FOSCARNET [Suspect]
     Dosage: GIVEN WEEKLY
     Route: 031
     Dates: end: 20061114
  3. NEUPOGEN [Concomitant]
  4. VITRASERT [Concomitant]
     Route: 050

REACTIONS (3)
  - LYMPHOMA [None]
  - PNEUMONIA [None]
  - WHITE BLOOD CELL COUNT ABNORMAL [None]
